FAERS Safety Report 21091130 (Version 1)
Quarter: 2022Q3

REPORT INFORMATION
  Report Type: Spontaneous
  Country: CA (occurrence: CA)
  Receive Date: 20220716
  Receipt Date: 20220716
  Transmission Date: 20221027
  Serious: Yes (Other)
  Sender: FDA-Public Use
  Company Number: None

PATIENT

DRUGS (4)
  1. MONTELUKAST [Suspect]
     Active Substance: MONTELUKAST SODIUM
     Indication: Obliterative bronchiolitis
  2. AZITHROMYCIN [Suspect]
     Active Substance: AZITHROMYCIN
     Indication: Obliterative bronchiolitis
  3. FLUTICASONE [Suspect]
     Active Substance: FLUTICASONE
     Indication: Obliterative bronchiolitis
  4. PREDNISONE [Suspect]
     Active Substance: PREDNISONE
     Indication: Obliterative bronchiolitis

REACTIONS (3)
  - Disease progression [Unknown]
  - Drug ineffective [Unknown]
  - Obliterative bronchiolitis [Unknown]
